FAERS Safety Report 4752424-0 (Version None)
Quarter: 2005Q3

REPORT INFORMATION
  Report Type: 
  Country: None (occurrence: None)
  Receive Date: 20050823
  Receipt Date: 20050811
  Transmission Date: 20060218
  Serious: Yes (Hospitalization)
  Sender: FDA-Public Use
  Company Number: HQWYE850511AUG05

PATIENT
  Age: 81 Year
  Sex: Male

DRUGS (6)
  1. INIPOMP (PANTOPRAZOLE, TABLET, DELAYED RELEASE) [Suspect]
     Dosage: 20 MG 1X PER 1 DAY ORAL
     Route: 048
     Dates: start: 20050118
  2. AMLODIPINE BESYLATE [Suspect]
     Dosage: 1 DOSAGE FORM 1X PER 1 DAY ORAL
     Route: 048
     Dates: start: 20050118
  3. KARDEGIC (ACETYLSALICYLATE LYSINE, ) [Suspect]
     Dosage: 160 MG1X PER 1 DAY ORAL
     Route: 048
     Dates: start: 20050118
  4. THALIDOMINE (THALIDOMIDE, ) [Suspect]
     Dosage: 100 MG 1X PER 1 DAY ORAL
     Route: 048
     Dates: start: 20050118, end: 20050708
  5. PRAVASTATIN [Suspect]
     Dosage: 20 MG 1X PER 1 DAY ORAL
     Route: 048
     Dates: start: 20050118
  6. CLARITHROMYCIN [Suspect]
     Dates: start: 20050524, end: 20050531

REACTIONS (4)
  - ASTHENIA [None]
  - PANCYTOPENIA [None]
  - RENAL FAILURE ACUTE [None]
  - TACHYPNOEA [None]
